FAERS Safety Report 14737894 (Version 1)
Quarter: 2018Q2

REPORT INFORMATION
  Report Type: Spontaneous
  Country: DE (occurrence: DE)
  Receive Date: 20180409
  Receipt Date: 20180409
  Transmission Date: 20180711
  Serious: Yes (Other)
  Sender: FDA-Public Use
  Company Number: PHHY2018DE043617

PATIENT
  Age: 50 Year
  Sex: Female

DRUGS (6)
  1. PROGESTERONE. [Suspect]
     Active Substance: PROGESTERONE
     Indication: HORMONE REPLACEMENT THERAPY
     Dosage: 1 DF, QD
     Route: 048
     Dates: start: 201508, end: 201610
  2. PROGESTERONE. [Suspect]
     Active Substance: PROGESTERONE
     Dosage: 1 DF, QD
     Route: 048
     Dates: start: 201612
  3. ESTRADIOL. [Suspect]
     Active Substance: ESTRADIOL
     Dosage: 1 DF, QD
     Route: 062
     Dates: start: 201703
  4. PROGESTERONE. [Suspect]
     Active Substance: PROGESTERONE
     Dosage: 1 DF, QD
     Route: 048
     Dates: start: 201703
  5. ESTRADIOL. [Suspect]
     Active Substance: ESTRADIOL
     Indication: HORMONE REPLACEMENT THERAPY
     Dosage: 1 DF, QD
     Route: 062
     Dates: start: 201508, end: 201610
  6. ESTRADIOL. [Suspect]
     Active Substance: ESTRADIOL
     Dosage: 1 DF, QD
     Route: 062
     Dates: start: 201612

REACTIONS (1)
  - Retinal vein occlusion [Recovered/Resolved]

NARRATIVE: CASE EVENT DATE: 201704
